FAERS Safety Report 20968851 (Version 1)
Quarter: 2022Q2

REPORT INFORMATION
  Report Type: Spontaneous
  Country: US (occurrence: US)
  Receive Date: 20220616
  Receipt Date: 20220616
  Transmission Date: 20220720
  Serious: Yes (Death, Other)
  Sender: FDA-Public Use
  Company Number: US-PFIZER INC-202200829338

PATIENT
  Age: 4 Year
  Sex: Female

DRUGS (8)
  1. DOXORUBICIN HYDROCHLORIDE [Suspect]
     Active Substance: DOXORUBICIN HYDROCHLORIDE
     Indication: Rhabdomyosarcoma
     Dosage: 125 MG/M2 (TOTAL DOSE OF DOXORUBICIN DELIVERED BEFORE COMPLETION OF PLANNED THERAPY)
     Dates: start: 197705
  2. DOXORUBICIN HYDROCHLORIDE [Suspect]
     Active Substance: DOXORUBICIN HYDROCHLORIDE
     Dosage: 295 MG/M2 (DURING HER ENTIRE TREATMENT PERIOD)
     Dates: end: 198009
  3. VINCRISTINE [Suspect]
     Active Substance: VINCRISTINE
     Indication: Rhabdomyosarcoma
     Dosage: UNK
     Dates: start: 197705
  4. MECHLORETHAMINE [Suspect]
     Active Substance: MECHLORETHAMINE
     Indication: Rhabdomyosarcoma
     Dosage: UNK
     Dates: start: 197705
  5. DACTINOMYCIN [Suspect]
     Active Substance: DACTINOMYCIN
     Indication: Rhabdomyosarcoma
     Dosage: UNK
     Dates: start: 197705
  6. CISPLATIN [Suspect]
     Active Substance: CISPLATIN
     Indication: Rhabdomyosarcoma recurrent
     Dosage: UNK
     Dates: start: 198005, end: 198009
  7. MITOXANTRONE [Suspect]
     Active Substance: MITOXANTRONE HYDROCHLORIDE
     Indication: Rhabdomyosarcoma recurrent
     Dosage: 18 MG/M2 (ON FIVE OCCASIONS)
     Dates: start: 1980
  8. MITOXANTRONE [Suspect]
     Active Substance: MITOXANTRONE HYDROCHLORIDE
     Dosage: 90 MG/M2 (TOTAL DOSE)

REACTIONS (3)
  - Cardiac failure congestive [Fatal]
  - Cardiomyopathy [Fatal]
  - Renal impairment [Unknown]

NARRATIVE: CASE EVENT DATE: 19810601
